FAERS Safety Report 7987270-8 (Version None)
Quarter: 2011Q4

REPORT INFORMATION
  Report Type: 
  Country: None (occurrence: None)
  Receive Date: 20111216
  Receipt Date: 20110408
  Transmission Date: 20120403
  Serious: No
  Sender: FDA-Public Use
  Company Number: US-BRISTOL-MYERS SQUIBB COMPANY-15641558

PATIENT
  Age: 50 Year
  Sex: Female
  Weight: 77 kg

DRUGS (5)
  1. PROZAC [Concomitant]
  2. ABILIFY [Suspect]
     Indication: ANXIETY
     Dosage: INCREASED TO 2MG/D FOR 3 WEEKS;REDUCED TO 1MG
     Route: 048
     Dates: start: 20100309
  3. VYVANSE [Concomitant]
  4. KLONOPIN [Concomitant]
  5. ABILIFY [Suspect]
     Indication: DEPRESSION
     Dosage: INCREASED TO 2MG/D FOR 3 WEEKS;REDUCED TO 1MG
     Route: 048
     Dates: start: 20100309

REACTIONS (4)
  - SWOLLEN TONGUE [None]
  - GLOSSODYNIA [None]
  - HYPOAESTHESIA ORAL [None]
  - DIZZINESS [None]
